FAERS Safety Report 6005656-8 (Version None)
Quarter: 2008Q4

REPORT INFORMATION
  Report Type: 
  Country: None (occurrence: None)
  Receive Date: 20081217
  Receipt Date: 20081211
  Transmission Date: 20090506
  Serious: Yes (Hospitalization)
  Sender: FDA-Public Use
  Company Number: US-JNJFOC-20081203364

PATIENT
  Sex: Male
  Weight: 79.38 kg

DRUGS (14)
  1. FENTANYL TRANSDERMAL SYSTEM [Suspect]
     Indication: PAIN IN EXTREMITY
     Route: 062
  2. FENTANYL TRANSDERMAL SYSTEM [Suspect]
     Indication: ARTHRALGIA
     Route: 062
  3. FENTANYL TRANSDERMAL SYSTEM [Suspect]
     Indication: GOUT
     Route: 062
  4. DURAGESIC-100 [Suspect]
     Indication: PAIN IN EXTREMITY
     Route: 062
  5. DURAGESIC-100 [Suspect]
     Indication: ARTHRALGIA
     Route: 062
  6. DURAGESIC-100 [Suspect]
     Indication: GOUT
     Route: 062
  7. PREVACID [Concomitant]
     Indication: IRRITABLE BOWEL SYNDROME
     Route: 048
  8. ROBINUL FORTE [Concomitant]
     Indication: GASTRITIS
     Route: 048
  9. TRICOR [Concomitant]
     Indication: BLOOD TRIGLYCERIDES
     Route: 048
  10. ZOCOR [Concomitant]
     Indication: BLOOD CHOLESTEROL
     Route: 048
  11. NEURONTIN [Concomitant]
     Indication: CONVULSION
     Route: 048
  12. NEURONTIN [Concomitant]
     Indication: ABDOMINAL RIGIDITY
     Route: 048
  13. ALLOPURINOL [Concomitant]
     Indication: GOUT
     Route: 048
  14. COLCHICINE [Concomitant]
     Indication: GOUT
     Route: 048

REACTIONS (5)
  - BACK PAIN [None]
  - GAIT DISTURBANCE [None]
  - GOUT [None]
  - SPINAL FRACTURE [None]
  - WRONG TECHNIQUE IN DRUG USAGE PROCESS [None]
